FAERS Safety Report 5573809-9 (Version None)
Quarter: 2007Q4

REPORT INFORMATION
  Report Type: 
  Country: None (occurrence: None)
  Receive Date: 20071226
  Receipt Date: 20071214
  Transmission Date: 20080405
  Serious: Yes (Hospitalization)
  Sender: FDA-Public Use
  Company Number: JP-PFIZER INC-2007105979

PATIENT
  Age: 73 Year
  Sex: Male

DRUGS (5)
  1. NORVASC [Suspect]
     Indication: HYPERTENSION
     Dosage: DAILY DOSE:5MG
     Route: 048
  2. SODIUM CHLORIDE [Concomitant]
     Route: 042
  3. MEYLON [Concomitant]
     Route: 042
  4. NEOLAMIN [Concomitant]
     Route: 042
  5. APOPLON [Concomitant]
     Route: 030

REACTIONS (1)
  - CEREBRAL INFARCTION [None]
